FAERS Safety Report 4647563-9 (Version None)
Quarter: 2005Q2

REPORT INFORMATION
  Report Type: 
  Country: None (occurrence: None)
  Receive Date: 20050428
  Receipt Date: 20050422
  Transmission Date: 20051028
  Serious: Yes (Disabling)
  Sender: FDA-Public Use
  Company Number: US-MERCK-0504USA04172

PATIENT
  Age: 55 Year
  Sex: Female

DRUGS (6)
  1. FOSAMAX [Suspect]
     Indication: OSTEOPOROSIS
     Route: 048
     Dates: start: 20041228, end: 20050201
  2. NARDIL [Suspect]
     Route: 065
  3. CLONAZEPAM [Concomitant]
     Route: 065
  4. PREMARIN [Concomitant]
     Route: 065
  5. ADDERALL TABLETS [Concomitant]
     Route: 065
  6. VITAMINS (UNSPECIFIED) [Concomitant]
     Route: 065

REACTIONS (1)
  - IMPAIRED GASTRIC EMPTYING [None]
